FAERS Safety Report 9566191 (Version 2)
Quarter: 2013Q4

REPORT INFORMATION
  Report Type: Spontaneous
  Country: US (occurrence: US)
  Receive Date: 20130930
  Receipt Date: 20131018
  Transmission Date: 20140711
  Serious: No
  Sender: FDA-Public Use
  Company Number: US-ASTRAZENECA-2013SE61194

PATIENT
  Age: 55 Year
  Sex: Female
  Weight: 62.6 kg

DRUGS (9)
  1. BRILINTA [Suspect]
     Indication: STENT PLACEMENT
     Route: 048
     Dates: start: 20130619
  2. ASPIRIN [Concomitant]
     Indication: SUPPLEMENTATION THERAPY
     Route: 048
  3. PANTOPROZOLE [Concomitant]
     Indication: GASTROOESOPHAGEAL REFLUX DISEASE
     Route: 048
  4. PANTOPROZOLE [Concomitant]
     Indication: GASTROOESOPHAGEAL REFLUX DISEASE
     Dosage: PROTONIX
  5. PANTOPROZOLE [Concomitant]
     Indication: GASTROOESOPHAGEAL REFLUX DISEASE
     Dosage: PROTONIX
  6. SUCRALFATE DRINK [Concomitant]
  7. COQ10 [Concomitant]
  8. NICIAMIDE [Concomitant]
  9. FLUCO NASAL [Concomitant]
     Indication: FUNGAL INFECTION

REACTIONS (12)
  - Mental impairment [Not Recovered/Not Resolved]
  - Memory impairment [Not Recovered/Not Resolved]
  - Cyanosis [Unknown]
  - Pallor [Unknown]
  - Rosacea [Unknown]
  - Gastrooesophageal reflux disease [Unknown]
  - Hypertension [Unknown]
  - Vitamin D decreased [Unknown]
  - Dyspnoea exertional [Not Recovered/Not Resolved]
  - Increased tendency to bruise [Not Recovered/Not Resolved]
  - Confusional state [Not Recovered/Not Resolved]
  - Epistaxis [Recovered/Resolved]
